FAERS Safety Report 8128560-8 (Version None)
Quarter: 2012Q1

REPORT INFORMATION
  Report Type: 
  Country: None (occurrence: None)
  Receive Date: 20120210
  Receipt Date: 20111206
  Transmission Date: 20120608
  Serious: No
  Sender: FDA-Public Use
  Company Number: US-BRISTOL-MYERS SQUIBB COMPANY-16273245

PATIENT

DRUGS (1)
  1. ORENCIA [Suspect]
     Dosage: 1 DF : 1000MG MIXED IN 250 ML OF NORMAL SALINE,ACCIDENTALLY MIXED

REACTIONS (1)
  - DRUG DISPENSING ERROR [None]
